FAERS Safety Report 21648966 (Version 2)
Quarter: 2023Q1

REPORT INFORMATION
  Report Type: Report from Study
  Country: US (occurrence: None)
  Receive Date: 20221128
  Receipt Date: 20230106
  Transmission Date: 20230418
  Serious: Yes (Hospitalization)
  Sender: FDA-Public Use
  Company Number: US-Merck Healthcare KGaA-9368066

PATIENT
  Age: 81 Year
  Sex: Male

DRUGS (1)
  1. SEROSTIM [Suspect]
     Active Substance: SOMATROPIN
     Indication: Cachexia
     Route: 058
     Dates: start: 20221007

REACTIONS (1)
  - Cardiac disorder [Recovering/Resolving]
